FAERS Safety Report 13617166 (Version 2)
Quarter: 2017Q2

REPORT INFORMATION
  Report Type: Spontaneous
  Country: US (occurrence: US)
  Receive Date: 20170606
  Receipt Date: 20170606
  Transmission Date: 20170830
  Serious: No
  Sender: FDA-Public Use
  Company Number: US-SA-2014SA159100

PATIENT
  Age: 79 Year
  Sex: Female

DRUGS (3)
  1. SOLOSTAR [Concomitant]
     Active Substance: DEVICE
     Dates: start: 2013
  2. LANTUS SOLOSTAR [Suspect]
     Active Substance: INSULIN GLARGINE
     Indication: TYPE 2 DIABETES MELLITUS
     Dosage: TAKES 16 UNITS IN THE AM AND PM
     Route: 058
     Dates: start: 2007
  3. LANTUS SOLOSTAR [Suspect]
     Active Substance: INSULIN GLARGINE
     Indication: TYPE 2 DIABETES MELLITUS
     Dosage: TAKES 16 UNITS IN THE AM AND 10 UNITS IN PM
     Route: 058

REACTIONS (3)
  - Product use issue [Unknown]
  - Blood glucose decreased [Unknown]
  - Visual impairment [Unknown]
